FAERS Safety Report 23073744 (Version 2)
Quarter: 2024Q4

REPORT INFORMATION
  Report Type: Spontaneous
  Country: US (occurrence: US)
  Receive Date: 20231017
  Receipt Date: 20241120
  Transmission Date: 20250114
  Serious: Yes (Hospitalization, Other)
  Sender: CIPLA
  Company Number: US-CIPLA LTD.-2023US06344

PATIENT

DRUGS (1)
  1. BUPROPION [Suspect]
     Active Substance: BUPROPION
     Dosage: UNK
     Route: 048

REACTIONS (6)
  - Cardiomyopathy [Recovered/Resolved]
  - Cardiogenic shock [Recovered/Resolved]
  - Mental status changes [Unknown]
  - Toxicity to various agents [Unknown]
  - Seizure [Unknown]
  - Intentional overdose [Unknown]
